FAERS Safety Report 20029640 (Version 1)
Quarter: 2021Q4

REPORT INFORMATION
  Report Type: Spontaneous
  Country: US (occurrence: US)
  Receive Date: 20211103
  Receipt Date: 20211103
  Transmission Date: 20220304
  Serious: Yes (Other)
  Sender: FDA-Public Use
  Company Number: US-BION-010138

PATIENT

DRUGS (1)
  1. ALEVE EASY OPEN ARTHRITIS CAP [Suspect]
     Active Substance: NAPROXEN SODIUM
     Indication: Hypersensitivity
     Route: 048

REACTIONS (4)
  - Foreign body in throat [Unknown]
  - Product use in unapproved indication [Not Recovered/Not Resolved]
  - Product size issue [Unknown]
  - Product use complaint [Unknown]
